FAERS Safety Report 24287573 (Version 3)
Quarter: 2024Q4

REPORT INFORMATION
  Report Type: Report from Study
  Country: US (occurrence: US)
  Receive Date: 20240905
  Receipt Date: 20241126
  Transmission Date: 20250115
  Serious: Yes (Other)
  Sender: SUNOVION
  Company Number: US-SUMITOMO PHARMA SWITZERLAND GMBH-2024SPA001893

PATIENT

DRUGS (2)
  1. ORGOVYX [Suspect]
     Active Substance: RELUGOLIX
     Indication: Prostate cancer
     Dosage: 120 MG, QD
     Route: 048
     Dates: start: 20240809
  2. CEFUROXIME [Concomitant]
     Active Substance: CEFUROXIME
     Dosage: 500 MG, BID
     Route: 065

REACTIONS (23)
  - Type 1 diabetes mellitus [Unknown]
  - Surgery [Unknown]
  - Affect lability [Unknown]
  - Menopause [Unknown]
  - Pyrexia [Unknown]
  - Chills [Unknown]
  - Abnormal dreams [Unknown]
  - Early satiety [Unknown]
  - Groin pain [Unknown]
  - Intraocular pressure increased [Unknown]
  - Vision blurred [Unknown]
  - Palpitations [Unknown]
  - Prostatic pain [Unknown]
  - Blood testosterone decreased [Unknown]
  - Pain [Unknown]
  - Abdominal pain [Unknown]
  - Insomnia [Unknown]
  - Headache [Unknown]
  - Arthralgia [Unknown]
  - Hot flush [Unknown]
  - Dysuria [Unknown]
  - Blood glucose increased [Unknown]
  - Incorrect dose administered [Unknown]

NARRATIVE: CASE EVENT DATE: 20240821
